FAERS Safety Report 16693659 (Version 1)
Quarter: 2019Q3

REPORT INFORMATION
  Report Type: Spontaneous
  Country: FR (occurrence: FR)
  Receive Date: 20190812
  Receipt Date: 20190812
  Transmission Date: 20191004
  Serious: Yes (Other)
  Sender: FDA-Public Use
  Company Number: FR-ASTRAZENECA-2019SE73403

PATIENT
  Age: 60 Year
  Sex: Female

DRUGS (5)
  1. LYNPARZA [Suspect]
     Active Substance: OLAPARIB
     Indication: PRODUCT USED FOR UNKNOWN INDICATION
     Dosage: 5 CAPSULES IN THE MORNING AND 6 CAPSULES IN THE EVENING (550 MG DAILY)
     Route: 048
     Dates: start: 201807
  2. LYNPARZA [Suspect]
     Active Substance: OLAPARIB
     Indication: PRODUCT USED FOR UNKNOWN INDICATION
     Dosage: 6 CAPSULES IN THE MORNING AND 6 CAPSULES IN THE EVENING (600 MG DAILY)
     Route: 048
     Dates: start: 201809
  3. LYNPARZA [Suspect]
     Active Substance: OLAPARIB
     Indication: PRODUCT USED FOR UNKNOWN INDICATION
     Dosage: 7 CAPSULES IN THE MORNING AND 7 CAPSULES IN THE EVENING (700 MG DAILY)
     Route: 048
     Dates: start: 201903, end: 20190521
  4. LYNPARZA [Suspect]
     Active Substance: OLAPARIB
     Indication: PRODUCT USED FOR UNKNOWN INDICATION
     Dosage: 6 CAPSULES IN THE MORNING AND 7 CAPSULES IN THE EVENING (650 MG DAILY)
     Route: 048
     Dates: start: 201812
  5. LYNPARZA [Suspect]
     Active Substance: OLAPARIB
     Indication: PRODUCT USED FOR UNKNOWN INDICATION
     Dosage: 10 CAPSULES DAILY (500 MG DAILY)
     Route: 048
     Dates: start: 201803

REACTIONS (6)
  - Off label use [Unknown]
  - Treatment noncompliance [Unknown]
  - Drug ineffective [Unknown]
  - Aphthous ulcer [Unknown]
  - Tooth disorder [Unknown]
  - Laboratory test abnormal [Unknown]

NARRATIVE: CASE EVENT DATE: 201803
